FAERS Safety Report 7155792-8 (Version None)
Quarter: 2010Q4

REPORT INFORMATION
  Report Type: 
  Country: None (occurrence: None)
  Receive Date: 20101123
  Receipt Date: 20100310
  Transmission Date: 20110411
  Serious: No
  Sender: FDA-Public Use
  Company Number: 008639

PATIENT
  Sex: Male

DRUGS (2)
  1. CIMZIA [Suspect]
     Indication: RHEUMATOID ARTHRITIS
     Dosage: (SUBCUTANEOUS)
     Route: 058
     Dates: start: 20090101, end: 20100101
  2. METHOTREXATE [Concomitant]

REACTIONS (2)
  - ADVERSE EVENT [None]
  - PLEURAL EFFUSION [None]
